FAERS Safety Report 4731910-3 (Version None)
Quarter: 2005Q3

REPORT INFORMATION
  Report Type: 
  Country: None (occurrence: None)
  Receive Date: 20050725
  Receipt Date: 20041111
  Transmission Date: 20060218
  Serious: Yes (Disabling)
  Sender: FDA-Public Use
  Company Number: WAES 0411USA02181

PATIENT
  Age: 29 Year
  Sex: Female

DRUGS (7)
  1. VIOXX [Suspect]
     Indication: PAIN MANAGEMENT
     Dosage: 25 MG/DAILY/PO
     Route: 048
     Dates: start: 20040101, end: 20040901
  2. EFFEXOR [Concomitant]
  3. ELAVIL [Concomitant]
  4. GABITRIL [Concomitant]
  5. LORTAB [Concomitant]
  6. ZANAFLEX [Concomitant]
  7. THERAPY UNSPECIFIED [Concomitant]

REACTIONS (2)
  - HYPERTENSION [None]
  - OEDEMA PERIPHERAL [None]
